FAERS Safety Report 9202674 (Version 2)
Quarter: 2013Q2

REPORT INFORMATION
  Report Type: Spontaneous
  Country: US (occurrence: US)
  Receive Date: 20130401
  Receipt Date: 20130506
  Transmission Date: 20140414
  Serious: No
  Sender: FDA-Public Use
  Company Number: US-PFIZER INC-2013098263

PATIENT
  Age: 16 Year
  Sex: Male
  Weight: 44.44 kg

DRUGS (2)
  1. GENOTROPIN [Suspect]
     Indication: GROWTH HORMONE DEFICIENCY
     Dosage: 2.6 MG, 1X/DAY
     Route: 058
     Dates: start: 201303
  2. CITALOPRAM [Concomitant]
     Indication: AFFECTIVE DISORDER
     Dosage: 20 MG, 1X/DAY

REACTIONS (3)
  - Mass [Recovering/Resolving]
  - Urticaria [Recovering/Resolving]
  - Contusion [Recovering/Resolving]
